FAERS Safety Report 7043316-5 (Version None)
Quarter: 2010Q4

REPORT INFORMATION
  Report Type: 
  Country: None (occurrence: None)
  Receive Date: 20101013
  Receipt Date: 20100119
  Transmission Date: 20110411
  Serious: No
  Sender: FDA-Public Use
  Company Number: US-ASTRAZENECA-2010SE02798

PATIENT

DRUGS (3)
  1. SYMBICORT [Suspect]
     Route: 055
  2. PULMICORT [Suspect]
     Route: 055
  3. PULMICORT [Suspect]
     Route: 055

REACTIONS (3)
  - DYSGEUSIA [None]
  - LACTOSE INTOLERANCE [None]
  - THIRST [None]
